FAERS Safety Report 16772477 (Version 1)
Quarter: 2019Q3

REPORT INFORMATION
  Report Type: Spontaneous
  Country: US (occurrence: US)
  Receive Date: 20190904
  Receipt Date: 20190904
  Transmission Date: 20191005
  Serious: No
  Sender: FDA-Public Use
  Company Number: US-PTC THERAPEUTICS, INC.-US-2019PTC000997

PATIENT
  Age: 15 Year
  Sex: Male

DRUGS (2)
  1. EMFLAZA [Suspect]
     Active Substance: DEFLAZACORT
     Indication: DUCHENNE MUSCULAR DYSTROPHY
     Dosage: 108 MG, SATURDAY AND SUNDAY
     Route: 048
     Dates: start: 20170614
  2. EMFLAZA [Suspect]
     Active Substance: DEFLAZACORT
     Dosage: 3 MG, MON-FRI
     Route: 048

REACTIONS (2)
  - Dyspnoea [Unknown]
  - Pulmonary function test decreased [Recovering/Resolving]

NARRATIVE: CASE EVENT DATE: 201905
